FAERS Safety Report 20919648 (Version 3)
Quarter: 2022Q3

REPORT INFORMATION
  Report Type: Spontaneous
  Country: US (occurrence: US)
  Receive Date: 20220606
  Receipt Date: 20220909
  Transmission Date: 20221027
  Serious: Yes (Other)
  Sender: FDA-Public Use
  Company Number: US-BRISTOL-MYERS SQUIBB COMPANY-2022-038289

PATIENT
  Age: 60 Year
  Sex: Female

DRUGS (4)
  1. REVLIMID [Suspect]
     Active Substance: LENALIDOMIDE
     Indication: Plasma cell myeloma
     Route: 048
     Dates: start: 20220413
  2. REVLIMID [Suspect]
     Active Substance: LENALIDOMIDE
     Dosage: 10 MG OTHER
     Route: 048
     Dates: start: 202206
  3. CLARITIN [Concomitant]
     Active Substance: LORATADINE
     Indication: Product used for unknown indication
     Route: 065
  4. PEPCID [Concomitant]
     Active Substance: FAMOTIDINE
     Indication: Product used for unknown indication
     Route: 065

REACTIONS (14)
  - Blindness [Unknown]
  - Peripheral swelling [Unknown]
  - Tinnitus [Unknown]
  - Joint swelling [Unknown]
  - Headache [Unknown]
  - Nausea [Unknown]
  - Taste disorder [Unknown]
  - Hypoaesthesia [Unknown]
  - Cough [Unknown]
  - Fatigue [Unknown]
  - Paraesthesia [Unknown]
  - Vision blurred [Unknown]
  - Abdominal discomfort [Unknown]
  - Abdominal pain upper [Unknown]

NARRATIVE: CASE EVENT DATE: 20220503
